FAERS Safety Report 4826249-1 (Version None)
Quarter: 2005Q4

REPORT INFORMATION
  Report Type: 
  Country: None (occurrence: None)
  Receive Date: 20051014
  Receipt Date: 20050723
  Transmission Date: 20060501
  Serious: No
  Sender: FDA-Public Use
  Company Number: 2005SP002115

PATIENT
  Sex: Female

DRUGS (10)
  1. LUNESTA [Suspect]
     Dosage: HS; ORAL
     Route: 048
     Dates: start: 20050722
  2. PAXIL [Concomitant]
  3. LORAZEPAM [Concomitant]
  4. ELAVIL [Concomitant]
  5. FLEXERIL [Concomitant]
  6. PROPRANOLOL [Concomitant]
  7. PROMETHAZINE [Concomitant]
  8. TRAMADOL HCL [Concomitant]
  9. DICYCLOMINE [Concomitant]
  10. AMBIEN [Concomitant]

REACTIONS (9)
  - BLOOD PRESSURE INCREASED [None]
  - CHEST PAIN [None]
  - DIZZINESS [None]
  - DYSGEUSIA [None]
  - HEART RATE DECREASED [None]
  - HYPERHIDROSIS [None]
  - HYPERTONIA [None]
  - MYALGIA [None]
  - NAUSEA [None]
